FAERS Safety Report 5536112-9 (Version None)
Quarter: 2007Q4

REPORT INFORMATION
  Report Type: 
  Country: None (occurrence: None)
  Receive Date: 20071204
  Receipt Date: 20071125
  Transmission Date: 20080405
  Serious: Yes (Hospitalization, Other)
  Sender: FDA-Public Use
  Company Number: 2007SP014482

PATIENT
  Age: 48 Year
  Sex: Male
  Weight: 68 kg

DRUGS (5)
  1. PEG-INTRON [Suspect]
     Indication: HEPATITIS C
     Dosage: 1.5 MCG;QW; SC; SC
     Route: 058
     Dates: start: 20070611, end: 20071001
  2. PEG-INTRON [Suspect]
     Indication: HEPATITIS C
     Dosage: 1.5 MCG;QW; SC; SC
     Route: 058
     Dates: start: 20071111
  3. RIBAVIRIN [Suspect]
     Indication: HEPATITIS C
     Dosage: 800 MG; QD; PO; 600 MG;QD; PO
     Route: 048
     Dates: start: 20070611, end: 20070711
  4. RIBAVIRIN [Suspect]
     Indication: HEPATITIS C
     Dosage: 800 MG; QD; PO; 600 MG;QD; PO
     Route: 048
     Dates: start: 20070712, end: 20071001
  5. RIBAVIRIN [Suspect]
     Indication: HEPATITIS C
     Dosage: 800 MG; QD; PO; 600 MG;QD; PO
     Route: 048
     Dates: start: 20071111

REACTIONS (5)
  - BLOOD DISORDER [None]
  - BLOOD SODIUM DECREASED [None]
  - DRY MOUTH [None]
  - ORAL CANDIDIASIS [None]
  - ORAL PAIN [None]
